FAERS Safety Report 4469203-4 (Version None)
Quarter: 2004Q4

REPORT INFORMATION
  Report Type: 
  Country: None (occurrence: None)
  Receive Date: 20041005
  Receipt Date: 20040928
  Transmission Date: 20050328
  Serious: Yes (Life-Threatening)
  Sender: FDA-Public Use
  Company Number: 2004232952AU

PATIENT
  Age: 51 Year
  Sex: Female
  Weight: 95 kg

DRUGS (16)
  1. ZAVEDOS     (IDARUBICIN HYDROCHLORIDE) [Suspect]
     Indication: ACUTE MYELOID LEUKAEMIA
     Dosage: 17 MG, QD X 3 DAYS, CYCLIC, IV
     Route: 042
     Dates: start: 20040908
  2. CYTARABINE [Suspect]
     Indication: ACUTE MYELOID LEUKAEMIA
     Dosage: 5-7 G, BID, DAYS 1,3,5,7, CYCLE, IV
     Route: 042
     Dates: start: 20040908
  3. COMPARATOR  -  ETOPOSIDE (ETOPOSIDE) INJECTION [Suspect]
     Indication: ACUTE MYELOID LEUKAEMIA
     Dosage: 145 MG, QD X 7 DAYS, CYCLIC, IV
     Route: 042
     Dates: start: 20040908
  4. ITRACONAZOLE [Concomitant]
  5. PROGOUT [Concomitant]
  6. MYCOSTATIN [Concomitant]
  7. ZOFRAN [Concomitant]
  8. DEXAMETHASONE [Concomitant]
  9. MAXOLON [Concomitant]
  10. SODIUM BICARBONATE [Concomitant]
  11. SLOW-K [Concomitant]
  12. DEXAMETHASONE [Concomitant]
  13. AMILORIDE [Concomitant]
  14. PRIMOLUT-N (NORETHISTERONE ACETATE) [Concomitant]
  15. CEFTRIAXONE [Concomitant]
  16. ERYTHROMYCIN [Concomitant]

REACTIONS (20)
  - ABDOMINAL PAIN [None]
  - BLOOD CULTURE POSITIVE [None]
  - BRAIN OEDEMA [None]
  - CEREBELLAR HAEMORRHAGE [None]
  - DRUG EFFECT DECREASED [None]
  - DYSPNOEA [None]
  - ENTEROBACTER INFECTION [None]
  - ENTEROCOCCAL INFECTION [None]
  - FLUID OVERLOAD [None]
  - HAEMODIALYSIS [None]
  - HAEMORRHAGE URINARY TRACT [None]
  - HYPERKALAEMIA [None]
  - LEUKOSTASIS [None]
  - LOOSE STOOLS [None]
  - MOUTH HAEMORRHAGE [None]
  - MUCOSAL INFLAMMATION [None]
  - OXYGEN SATURATION DECREASED [None]
  - PULMONARY OEDEMA [None]
  - RENAL FAILURE ACUTE [None]
  - TUMOUR LYSIS SYNDROME [None]
